FAERS Safety Report 14879252 (Version 3)
Quarter: 2021Q1

REPORT INFORMATION
  Report Type: Spontaneous
  Country: CA (occurrence: CA)
  Receive Date: 20180511
  Receipt Date: 20210115
  Transmission Date: 20210419
  Serious: Yes (Other)
  Sender: FDA-Public Use
  Company Number: CA-ROCHE-2120607

PATIENT
  Age: 64 Year
  Sex: Male
  Weight: 140 kg

DRUGS (34)
  1. METOPROLOL. [Concomitant]
     Active Substance: METOPROLOL
     Route: 048
  2. PANTOPRAZOLE [Concomitant]
     Active Substance: PANTOPRAZOLE
     Route: 048
  3. ROSUVASTATIN CALCIUM. [Concomitant]
     Active Substance: ROSUVASTATIN CALCIUM
     Route: 048
  4. SYNTHROID [Concomitant]
     Active Substance: LEVOTHYROXINE SODIUM
     Route: 048
  5. TICAGRELOR. [Concomitant]
     Active Substance: TICAGRELOR
     Route: 048
  6. LIRAGLUTIDE [Concomitant]
     Active Substance: LIRAGLUTIDE
  7. PANTOPRAZOLE MAGNESIUM [Concomitant]
     Active Substance: PANTOPRAZOLE MAGNESIUM
  8. CORTEF [Suspect]
     Active Substance: HYDROCORTISONE
     Indication: PRODUCT USED FOR UNKNOWN INDICATION
     Route: 048
  9. CORTEF [Suspect]
     Active Substance: HYDROCORTISONE
     Route: 048
  10. ELTROXIN [Concomitant]
     Active Substance: LEVOTHYROXINE
  11. TARGIN [Concomitant]
     Active Substance: NALOXONE HYDROCHLORIDE\OXYCODONE HYDROCHLORIDE
     Dosage: DOSAGE FORM : 2.0
  12. VICTOZA [Concomitant]
     Active Substance: LIRAGLUTIDE
  13. ACETYLSALICYLIC ACID [Concomitant]
     Active Substance: ASPIRIN
  14. ANDROGEL [Concomitant]
     Active Substance: TESTOSTERONE
     Indication: ANAEMIA
  15. GABAPENTIN. [Concomitant]
     Active Substance: GABAPENTIN
  16. GLUCOBAY [Concomitant]
     Active Substance: ACARBOSE
     Route: 048
  17. REACTINE (CANADA) [Concomitant]
     Active Substance: CETIRIZINE HYDROCHLORIDE
  18. TECTA [Concomitant]
     Active Substance: PANTOPRAZOLE MAGNESIUM
  19. DIAZEPAM. [Concomitant]
     Active Substance: DIAZEPAM
     Route: 065
  20. DULCOLAX (BISACODYL) [Concomitant]
     Active Substance: BISACODYL
     Dosage: 10.0 MG
  21. INSULIN GLARGINE [Concomitant]
     Active Substance: INSULIN GLARGINE
  22. LIOTHYRONINE SODIUM. [Concomitant]
     Active Substance: LIOTHYRONINE SODIUM
  23. MAGNESIUM GLYCINATE [Concomitant]
     Active Substance: MAGNESIUM GLYCINATE
  24. OLMETEC [Concomitant]
     Active Substance: OLMESARTAN MEDOXOMIL
     Route: 048
  25. ZINC. [Concomitant]
     Active Substance: ZINC
  26. SOMATROPIN. [Suspect]
     Active Substance: SOMATROPIN
     Indication: GROWTH HORMONE DEFICIENCY
     Dosage: EVERY 1 DAY(S)
     Route: 058
  27. CLOBETASOL [Concomitant]
     Active Substance: CLOBETASOL
  28. LANTUS [Concomitant]
     Active Substance: INSULIN GLARGINE
     Route: 058
  29. VITAMIN D3 [Concomitant]
     Active Substance: CHOLECALCIFEROL
     Dosage: 50000 IU (INTERNATIONAL UNIT).
  30. NORVASC [Concomitant]
     Active Substance: AMLODIPINE BESYLATE
     Route: 048
  31. SOLU?MEDROL [Concomitant]
     Active Substance: METHYLPREDNISOLONE SODIUM SUCCINATE
  32. AMLODIPINE BESILATE [Concomitant]
     Active Substance: AMLODIPINE BESYLATE
     Route: 048
  33. CORTEF [Suspect]
     Active Substance: HYDROCORTISONE
     Route: 048
  34. GLUMETZA [Concomitant]
     Active Substance: METFORMIN HYDROCHLORIDE

REACTIONS (12)
  - Drug hypersensitivity [Not Recovered/Not Resolved]
  - Drug intolerance [Not Recovered/Not Resolved]
  - Hypertension [Not Recovered/Not Resolved]
  - Hypoglycaemia [Not Recovered/Not Resolved]
  - Increased appetite [Not Recovered/Not Resolved]
  - Weight increased [Not Recovered/Not Resolved]
  - Infection [Not Recovered/Not Resolved]
  - Insulin-like growth factor increased [Not Recovered/Not Resolved]
  - Pain [Not Recovered/Not Resolved]
  - Condition aggravated [Not Recovered/Not Resolved]
  - Diabetes mellitus inadequate control [Not Recovered/Not Resolved]
  - Glycosylated haemoglobin increased [Not Recovered/Not Resolved]
